FAERS Safety Report 14716764 (Version 4)
Quarter: 2018Q2

REPORT INFORMATION
  Report Type: Spontaneous
  Country: JP (occurrence: JP)
  Receive Date: 20180404
  Receipt Date: 20180430
  Transmission Date: 20180711
  Serious: Yes (Other)
  Sender: FDA-Public Use
  Company Number: JP-PFIZER INC-2018134427

PATIENT
  Age: 70 Year
  Sex: Male

DRUGS (2)
  1. NAB-PACLITAXEL [Suspect]
     Active Substance: PACLITAXEL
     Indication: PANCREATIC CARCINOMA METASTATIC
     Dosage: 200 MG, CYCLIC (TWO CYCLES, ADMINISTRATION FOR 3 WEEKS AND 2 WEEKS WITHOUT)
  2. GEMCITABINE HYDROCHLORIDE. [Suspect]
     Active Substance: GEMCITABINE HYDROCHLORIDE
     Indication: PANCREATIC CARCINOMA METASTATIC
     Dosage: 1400 MG, CYCLIC (TWO CYCLES, ADMINISTRATION FOR 3 WEEKS AND 2 WEEKS WITHOUT)

REACTIONS (1)
  - Cerebral infarction [Unknown]
